FAERS Safety Report 13182804 (Version 1)
Quarter: 2017Q1

REPORT INFORMATION
  Report Type: Spontaneous
  Country: US (occurrence: US)
  Receive Date: 20170203
  Receipt Date: 20170203
  Transmission Date: 20170428
  Serious: No
  Sender: FDA-Public Use
  Company Number: US-PFIZER INC-2017046534

PATIENT
  Sex: Male

DRUGS (2)
  1. SUTENT [Suspect]
     Active Substance: SUNITINIB MALATE
     Indication: RENAL CELL CARCINOMA STAGE IV
     Dosage: UNK [37.5 2/1]
     Dates: start: 201602, end: 201609
  2. GEMZAR [Concomitant]
     Active Substance: GEMCITABINE HYDROCHLORIDE
     Indication: RENAL CELL CARCINOMA STAGE IV
     Dosage: UNK
     Route: 041

REACTIONS (7)
  - Abdominal discomfort [Unknown]
  - Fatigue [Unknown]
  - Oral pain [Unknown]
  - Skin discolouration [Unknown]
  - Cataract [Unknown]
  - Dysgeusia [Unknown]
  - Blood pressure abnormal [Unknown]
